FAERS Safety Report 14039477 (Version 1)
Quarter: 2017Q4

REPORT INFORMATION
  Report Type: Spontaneous
  Country: US (occurrence: US)
  Receive Date: 20171004
  Receipt Date: 20171004
  Transmission Date: 20180321
  Serious: No
  Sender: FDA-Public Use
  Company Number: US-GLAXOSMITHKLINE-US2017GSK149726

PATIENT
  Age: 78 Year
  Sex: Female

DRUGS (1)
  1. ANORO ELLIPTA [Suspect]
     Active Substance: UMECLIDINIUM BROMIDE\VILANTEROL TRIFENATATE
     Indication: PRODUCT USED FOR UNKNOWN INDICATION
     Dosage: 1 PUFF(S), QD
     Dates: start: 20170924

REACTIONS (8)
  - Nasal pruritus [Recovered/Resolved]
  - Sneezing [Recovered/Resolved]
  - Sinus congestion [Recovered/Resolved]
  - Rhinorrhoea [Recovered/Resolved]
  - Product name confusion [Unknown]
  - Cough [Recovered/Resolved]
  - Nasopharyngitis [Recovered/Resolved]
  - Nasal congestion [Recovered/Resolved]

NARRATIVE: CASE EVENT DATE: 201709
